FAERS Safety Report 16257457 (Version 1)
Quarter: 2019Q2

REPORT INFORMATION
  Report Type: Spontaneous
  Country: DE (occurrence: DE)
  Receive Date: 20190430
  Receipt Date: 20190430
  Transmission Date: 20190711
  Serious: No
  Sender: FDA-Public Use
  Company Number: DE-B. BRAUN MEDICAL INC.-2066449

PATIENT
  Age: 61 Year
  Sex: Male
  Weight: 66 kg

DRUGS (5)
  1. SODIUM CHLORIDE. [Suspect]
     Active Substance: SODIUM CHLORIDE
     Route: 042
     Dates: start: 20171221
  2. ADDEL TRACE [COPPER?GLUCONATE, CHROMIUM?TRICHLORIDE HEXAHYDRATE,?FERRO [Suspect]
     Active Substance: ELECTROLYTES NOS\MINERALS
     Route: 042
     Dates: start: 20171107
  3. INDIVIDUAL COMPOUNDED NUTRITION?SOLUTION [Suspect]
     Active Substance: DIETARY SUPPLEMENT
     Route: 042
     Dates: start: 20180228
  4. POTASSIUM CHLORIDE FOR INJECTION CONCENTRATE USP 0264-1940-20 (ANDA 08 [Suspect]
     Active Substance: POTASSIUM CHLORIDE
     Indication: HYPOKALAEMIA
     Route: 042
     Dates: start: 20171219
  5. CERNEVIT [Suspect]
     Active Substance: VITAMINS
     Route: 042
     Dates: start: 20171107

REACTIONS (1)
  - Hyperglycaemia [Unknown]
